FAERS Safety Report 7198469-5 (Version None)
Quarter: 2010Q4

REPORT INFORMATION
  Report Type: 
  Country: None (occurrence: None)
  Receive Date: 20101223
  Receipt Date: 20101223
  Transmission Date: 20110411
  Serious: No
  Sender: FDA-Public Use
  Company Number: None

PATIENT
  Age: 24 Year
  Sex: Female
  Weight: 43.0917 kg

DRUGS (1)
  1. LEVAQUIN [Suspect]
     Indication: BRONCHITIS
     Dosage: IV
     Route: 042
     Dates: start: 20101204, end: 20101204

REACTIONS (3)
  - INFUSION SITE PAIN [None]
  - NEUROPATHY PERIPHERAL [None]
  - SHOCK [None]
